FAERS Safety Report 11267998 (Version 1)
Quarter: 2015Q3

REPORT INFORMATION
  Report Type: Spontaneous
  Country: US (occurrence: US)
  Receive Date: 20150713
  Receipt Date: 20150713
  Transmission Date: 20151125
  Serious: No
  Sender: FDA-Public Use
  Company Number: US-MPIJNJ-2014MPI001210

PATIENT
  Sex: Male

DRUGS (2)
  1. VELCADE [Suspect]
     Active Substance: BORTEZOMIB
     Indication: PLASMA CELL MYELOMA
     Dosage: 2.4 MG
     Route: 042
     Dates: start: 20121210
  2. VELCADE [Suspect]
     Active Substance: BORTEZOMIB
     Dosage: 2.0 MG, 1/WEEK
     Route: 058

REACTIONS (1)
  - Respiratory tract congestion [Unknown]
